FAERS Safety Report 25845649 (Version 1)
Quarter: 2025Q3

REPORT INFORMATION
  Report Type: Report from Study
  Country: US (occurrence: US)
  Receive Date: 20250925
  Receipt Date: 20250925
  Transmission Date: 20251020
  Serious: Yes (Other)
  Sender: ALEXION PHARMACEUTICALS
  Company Number: US-AstraZeneca-CH-00955834A

PATIENT
  Sex: Female

DRUGS (2)
  1. OSIMERTINIB [Interacting]
     Active Substance: OSIMERTINIB
     Route: 065
  2. FAMOTIDINE [Interacting]
     Active Substance: FAMOTIDINE
     Route: 065

REACTIONS (3)
  - Gastric ulcer [Unknown]
  - Drug interaction [Unknown]
  - Cardiac disorder [Unknown]
